FAERS Safety Report 6234663-5 (Version None)
Quarter: 2009Q2

REPORT INFORMATION
  Report Type: 
  Country: None (occurrence: None)
  Receive Date: 20090615
  Receipt Date: 20090306
  Transmission Date: 20091009
  Serious: No
  Sender: FDA-Public Use
  Company Number: DSA_33330_2009

PATIENT
  Sex: Female

DRUGS (4)
  1. XENAZINE [Suspect]
     Indication: HUNTINGTON'S CHOREA
     Dosage: (37.5 MG QD), (25 MG QD)
     Dates: start: 20090201
  2. XENAZINE [Suspect]
     Indication: HUNTINGTON'S CHOREA
     Dosage: (37.5 MG QD), (25 MG QD)
     Dates: start: 20090201
  3. ZOLOFT [Concomitant]
  4. ARICEPT [Concomitant]

REACTIONS (2)
  - ANXIETY [None]
  - INSOMNIA [None]
